FAERS Safety Report 9301865 (Version 1)
Quarter: 2013Q2

REPORT INFORMATION
  Report Type: Spontaneous
  Country: FR (occurrence: FR)
  Receive Date: 20130521
  Receipt Date: 20130521
  Transmission Date: 20140414
  Serious: Yes (Hospitalization)
  Sender: FDA-Public Use
  Company Number: FR-009507513-1305FRA006885

PATIENT
  Age: 62 Year
  Sex: Female

DRUGS (5)
  1. JANUVIA [Suspect]
     Dosage: 100 MG, QD
     Route: 048
     Dates: end: 20130304
  2. SIMVASTATIN [Suspect]
     Dosage: 20 MG, QD
     Route: 048
     Dates: end: 20130304
  3. SELOKEN [Concomitant]
  4. SERC (BETAHISTINE HYDROCHLORIDE) [Concomitant]
  5. SPAGULAX [Concomitant]

REACTIONS (1)
  - Myopathy [Recovering/Resolving]
